FAERS Safety Report 10247916 (Version 1)
Quarter: 2014Q2

REPORT INFORMATION
  Report Type: Spontaneous
  Country: US (occurrence: US)
  Receive Date: 20140619
  Receipt Date: 20140619
  Transmission Date: 20141212
  Serious: Yes (Other)
  Sender: FDA-Public Use
  Company Number: US-B.I. PHARMACEUTICALS,INC./RIDGEFIELD-2014-BI-27399BP

PATIENT
  Sex: Female

DRUGS (5)
  1. PRADAXA [Suspect]
     Indication: ATRIAL FIBRILLATION
     Dosage: 300 MG
     Route: 048
     Dates: start: 201106
  2. SPIRIVA [Suspect]
     Indication: BRONCHITIS CHRONIC
     Dosage: 18 MCG
     Route: 055
     Dates: start: 2005
  3. SPIRIVA [Suspect]
     Indication: CHRONIC OBSTRUCTIVE PULMONARY DISEASE
  4. ADVAIR [Concomitant]
     Indication: CHRONIC OBSTRUCTIVE PULMONARY DISEASE
     Route: 055
  5. ADVAIR [Concomitant]
     Indication: BRONCHITIS CHRONIC

REACTIONS (11)
  - Macular degeneration [Not Recovered/Not Resolved]
  - Nasal polyps [Recovered/Resolved]
  - Haematoma [Recovered/Resolved]
  - Hypersensitivity [Recovered/Resolved]
  - Epistaxis [Recovered/Resolved]
  - Respiratory tract haemorrhage [Not Recovered/Not Resolved]
  - Ventricular extrasystoles [Not Recovered/Not Resolved]
  - Palpitations [Recovered/Resolved]
  - Nasal polyps [Not Recovered/Not Resolved]
  - Ear pain [Recovered/Resolved]
  - Neck pain [Recovered/Resolved]
